FAERS Safety Report 25131511 (Version 1)
Quarter: 2025Q1

REPORT INFORMATION
  Report Type: Spontaneous
  Country: ES (occurrence: ES)
  Receive Date: 20250327
  Receipt Date: 20250327
  Transmission Date: 20250409
  Serious: Yes (Hospitalization, Other)
  Sender: TEVA
  Company Number: ES-TEVA-VS-3311872

PATIENT
  Sex: Male

DRUGS (24)
  1. PEMETREXED [Suspect]
     Active Substance: PEMETREXED
     Indication: Lung adenocarcinoma
     Route: 065
  2. PACLITAXEL [Suspect]
     Active Substance: PACLITAXEL
     Indication: Lung adenocarcinoma
     Route: 065
  3. POLYETHYLENE GLYCOLS [Concomitant]
     Active Substance: POLYETHYLENE GLYCOLS
     Indication: Constipation
     Route: 065
  4. VINORELBINE [Suspect]
     Active Substance: VINORELBINE TARTRATE
     Indication: Lung adenocarcinoma
     Route: 065
  5. OMEPRAZOLE [Concomitant]
     Active Substance: OMEPRAZOLE
     Indication: Product used for unknown indication
     Route: 065
  6. MIRTAZAPINE [Interacting]
     Active Substance: MIRTAZAPINE
     Indication: Depression
     Route: 065
  7. TAMSULOSIN [Concomitant]
     Active Substance: TAMSULOSIN
     Indication: Benign prostatic hyperplasia
     Route: 065
  8. SULFAMETHOXAZOLE\TRIMETHOPRIM [Suspect]
     Active Substance: SULFAMETHOXAZOLE\TRIMETHOPRIM
     Indication: Pulmonary nocardiosis
     Route: 065
  9. SULFAMETHOXAZOLE\TRIMETHOPRIM [Suspect]
     Active Substance: SULFAMETHOXAZOLE\TRIMETHOPRIM
     Indication: Pulmonary nocardiosis
     Route: 048
  10. CEFDITOREN [Concomitant]
     Active Substance: CEFDITOREN
     Indication: Evidence based treatment
     Route: 065
  11. APIXABAN [Concomitant]
     Active Substance: APIXABAN
     Indication: Product used for unknown indication
     Route: 065
  12. CEFTRIAXONE [Concomitant]
     Active Substance: CEFTRIAXONE
     Indication: Pulmonary nocardiosis
     Route: 065
  13. TRIMETHOPRIM [Suspect]
     Active Substance: TRIMETHOPRIM
     Indication: Pulmonary nocardiosis
     Route: 048
  14. ALPRAZOLAM [Concomitant]
     Active Substance: ALPRAZOLAM
     Indication: Depression
     Route: 065
  15. PEMBROLIZUMAB [Suspect]
     Active Substance: PEMBROLIZUMAB
     Indication: Lung adenocarcinoma
     Route: 065
  16. IMIPENEM [Concomitant]
     Active Substance: IMIPENEM
     Indication: Pulmonary nocardiosis
     Route: 065
  17. IMIPENEM [Concomitant]
     Active Substance: IMIPENEM
     Indication: Pulmonary nocardiosis
     Route: 065
  18. AMIKACIN [Concomitant]
     Active Substance: AMIKACIN
     Indication: Pulmonary nocardiosis
     Route: 065
  19. CARBOPLATIN [Suspect]
     Active Substance: CARBOPLATIN
     Indication: Lung adenocarcinoma
     Route: 065
  20. AZITHROMYCIN [Concomitant]
     Active Substance: AZITHROMYCIN
     Indication: Evidence based treatment
     Route: 065
  21. LINEZOLID [Interacting]
     Active Substance: LINEZOLID
     Indication: Pulmonary nocardiosis
     Route: 042
  22. LINEZOLID [Interacting]
     Active Substance: LINEZOLID
     Indication: Pulmonary nocardiosis
     Route: 048
  23. LINEZOLID [Interacting]
     Active Substance: LINEZOLID
     Indication: Pulmonary nocardiosis
     Route: 065
  24. LINEZOLID [Interacting]
     Active Substance: LINEZOLID
     Indication: Pulmonary nocardiosis
     Route: 065

REACTIONS (4)
  - Drug-induced liver injury [Recovering/Resolving]
  - Myelosuppression [Unknown]
  - Drug interaction [Unknown]
  - Drug ineffective [Unknown]

NARRATIVE: CASE EVENT DATE: 20240401
